FAERS Safety Report 15733940 (Version 1)
Quarter: 2018Q4

REPORT INFORMATION
  Report Type: Spontaneous
  Country: US (occurrence: US)
  Receive Date: 20181218
  Receipt Date: 20181218
  Transmission Date: 20190205
  Serious: No
  Sender: FDA-Public Use
  Company Number: US-PFIZER INC-2018511891

PATIENT
  Age: 72 Year
  Sex: Female
  Weight: 72.57 kg

DRUGS (4)
  1. XELJANZ XR [Suspect]
     Active Substance: TOFACITINIB CITRATE
     Indication: RHEUMATOID ARTHRITIS
  2. XELJANZ XR [Suspect]
     Active Substance: TOFACITINIB CITRATE
     Indication: PUSTULAR PSORIASIS
     Dosage: 11 MG, DAILY
     Route: 048
     Dates: start: 20181205
  3. PREDNISONE. [Suspect]
     Active Substance: PREDNISONE
     Indication: PUSTULAR PSORIASIS
     Dosage: 10 MG, DAILY
     Route: 048
     Dates: start: 20181205
  4. PREDNISONE. [Suspect]
     Active Substance: PREDNISONE
     Indication: RHEUMATOID ARTHRITIS

REACTIONS (4)
  - Fatigue [Unknown]
  - Headache [Unknown]
  - Somnolence [Unknown]
  - Visual field defect [Unknown]

NARRATIVE: CASE EVENT DATE: 20181205
